FAERS Safety Report 21451512 (Version 1)
Quarter: 2022Q4

REPORT INFORMATION
  Report Type: Spontaneous
  Country: US (occurrence: US)
  Receive Date: 20221013
  Receipt Date: 20221013
  Transmission Date: 20230113
  Serious: Yes (Other)
  Sender: FDA-Public Use
  Company Number: US-TEVA-2022-US-2081785

PATIENT
  Age: 19 Year
  Sex: Male

DRUGS (26)
  1. AZACITIDINE [Suspect]
     Active Substance: AZACITIDINE
     Indication: Acute myeloid leukaemia
     Dosage: SECOND LINE THERAPY
     Route: 065
  2. AZACITIDINE [Suspect]
     Active Substance: AZACITIDINE
     Dosage: NINTH LINE THERAPY
     Route: 065
  3. DAUNORUBICIN [Suspect]
     Active Substance: DAUNORUBICIN
     Indication: Acute myeloid leukaemia
     Route: 065
  4. ETOPOSIDE [Suspect]
     Active Substance: ETOPOSIDE
     Indication: Acute myeloid leukaemia
     Route: 065
  5. FLUDARABINE [Suspect]
     Active Substance: FLUDARABINE PHOSPHATE
     Indication: Acute myeloid leukaemia
     Dosage: SECOND LINE THERAPY
     Route: 065
  6. FLUDARABINE [Suspect]
     Active Substance: FLUDARABINE PHOSPHATE
     Dosage: ELEVENTH LINE THERAPY
     Route: 065
  7. SORAFENIB [Suspect]
     Active Substance: SORAFENIB
     Indication: Acute myeloid leukaemia
     Dosage: TENTH LINE THERAPY
     Route: 065
  8. VORINOSTAT [Suspect]
     Active Substance: VORINOSTAT
     Indication: Acute myeloid leukaemia
     Dosage: ELEVENTH LINE THERAPY
     Route: 065
  9. CYTARABINE [Suspect]
     Active Substance: CYTARABINE
     Indication: Acute myeloid leukaemia
     Route: 065
  10. CYTARABINE [Suspect]
     Active Substance: CYTARABINE
     Dosage: FIRST LINE THERAPY
     Route: 065
  11. CYTARABINE [Suspect]
     Active Substance: CYTARABINE
     Dosage: SECOND LINE THERAPY
     Route: 065
  12. CYTARABINE [Suspect]
     Active Substance: CYTARABINE
     Dosage: ELEVENTH LINE THERAPY
     Route: 065
  13. MITOXANTRONE [Suspect]
     Active Substance: MITOXANTRONE HYDROCHLORIDE
     Indication: Acute myeloid leukaemia
     Dosage: FIRST LINE THERAPY
     Route: 065
  14. DECITABINE [Suspect]
     Active Substance: DECITABINE
     Indication: Acute myeloid leukaemia
     Dosage: THIRD LINE THERAPY
     Route: 065
  15. DECITABINE [Suspect]
     Active Substance: DECITABINE
     Dosage: EIGHTH LINE THERAPY
     Route: 065
  16. DECITABINE [Suspect]
     Active Substance: DECITABINE
     Dosage: TENTH LINE THERAPY
     Route: 065
  17. ELUVIXTAMAB [Suspect]
     Active Substance: ELUVIXTAMAB
     Indication: Acute myeloid leukaemia
     Dosage: FOURTH LINE THERAPY
     Route: 065
  18. MIK-665 [Suspect]
     Active Substance: MIK-665
     Indication: Acute myeloid leukaemia
     Dosage: SEVENTH LINE THERAPY
     Route: 065
  19. VENETOCLAX [Suspect]
     Active Substance: VENETOCLAX
     Indication: Acute myeloid leukaemia
     Dosage: EIGHTH LINE THERAPY
     Route: 065
  20. VENETOCLAX [Suspect]
     Active Substance: VENETOCLAX
     Indication: Acute myeloid leukaemia
     Dosage: TENTH LINE THERAPY
     Route: 065
  21. MIDOSTAURIN [Suspect]
     Active Substance: MIDOSTAURIN
     Indication: Acute myeloid leukaemia
     Dosage: EIGHTH LINE THERAPY
     Route: 065
  22. INVESTIGATIONAL PRODUCT [Suspect]
     Active Substance: INVESTIGATIONAL PRODUCT
     Indication: Acute myeloid leukaemia
     Dosage: NINTH LINE THERAPY
     Route: 065
  23. PONATINIB [Suspect]
     Active Substance: PONATINIB
     Indication: Acute myeloid leukaemia
     Dosage: TENTH LINE THERAPY
     Route: 065
  24. PONATINIB [Suspect]
     Active Substance: PONATINIB
     Dosage: ELEVENTH LINE THERAPY
     Route: 065
  25. GILTERITINIB [Suspect]
     Active Substance: GILTERITINIB
     Indication: Acute myeloid leukaemia
     Dosage: TENTH LINE THERAPY
     Route: 065
  26. GILTERITINIB [Suspect]
     Active Substance: GILTERITINIB
     Dosage: ELEVENTH LINE THERAPY
     Route: 065

REACTIONS (4)
  - Alanine aminotransferase increased [Unknown]
  - Febrile neutropenia [Unknown]
  - Bacteraemia [Unknown]
  - Drug ineffective [Unknown]
